FAERS Safety Report 11235117 (Version 1)
Quarter: 2015Q3

REPORT INFORMATION
  Report Type: Spontaneous
  Country: FR (occurrence: FR)
  Receive Date: 20150702
  Receipt Date: 20150702
  Transmission Date: 20151125
  Serious: Yes (Life-Threatening, Hospitalization, Disabling)
  Sender: FDA-Public Use
  Company Number: FR-SA-2015SA091136

PATIENT
  Age: 47 Year
  Sex: Female

DRUGS (29)
  1. SALAZOPYRINE [Suspect]
     Active Substance: SULFASALAZINE
     Indication: RHEUMATOID ARTHRITIS
     Route: 048
     Dates: start: 20130723, end: 201308
  2. ORENCIA [Suspect]
     Active Substance: ABATACEPT
     Indication: RHEUMATOID ARTHRITIS
     Route: 042
     Dates: start: 201310, end: 201409
  3. SYMBICORT [Suspect]
     Active Substance: BUDESONIDE\FORMOTEROL FUMARATE DIHYDRATE
     Indication: ASTHMA
     Route: 065
     Dates: start: 201205, end: 201307
  4. SOLUPRED [Concomitant]
     Active Substance: PREDNISOLONE
     Indication: DYSPNOEA
  5. ATROVENT [Concomitant]
     Active Substance: IPRATROPIUM BROMIDE
     Dates: start: 201203, end: 20120328
  6. ATROVENT [Concomitant]
     Active Substance: IPRATROPIUM BROMIDE
  7. RULID [Concomitant]
     Active Substance: ROXITHROMYCIN
     Dates: start: 201411
  8. DOLIPRANE [Suspect]
     Active Substance: ACETAMINOPHEN
     Route: 065
     Dates: start: 201310
  9. METHOTREXATE (METHOTREXATE SODIUM) [Suspect]
     Active Substance: METHOTREXATE SODIUM
     Indication: RHEUMATOID ARTHRITIS
     Route: 048
     Dates: end: 20121207
  10. ADRENALINE [Concomitant]
     Active Substance: EPINEPHRINE
  11. ZOFORA [Concomitant]
  12. CORTANCYL [Suspect]
     Active Substance: PREDNISONE
     Indication: RHEUMATOID ARTHRITIS
     Route: 048
     Dates: start: 201310, end: 201409
  13. RIFINAH [Suspect]
     Active Substance: ISONIAZID\RIFAMPIN
     Route: 048
     Dates: start: 2012
  14. METHOTREXATE (METHOTREXATE SODIUM) [Suspect]
     Active Substance: METHOTREXATE SODIUM
     Indication: RHEUMATOID ARTHRITIS
     Route: 048
     Dates: start: 20120502, end: 201207
  15. ZAMUDOL [Suspect]
     Active Substance: TRAMADOL HYDROCHLORIDE
     Route: 048
     Dates: start: 201310
  16. ROCEPHINE [Concomitant]
     Active Substance: CEFTRIAXONE SODIUM
     Dates: start: 201303
  17. METOJECT [Suspect]
     Active Substance: METHOTREXATE SODIUM
     Indication: RHEUMATOID ARTHRITIS
     Route: 042
     Dates: start: 20120210, end: 20120309
  18. SOLUPRED [Concomitant]
     Active Substance: PREDNISOLONE
     Indication: DYSPNOEA
     Dosage: 1MG/KG
  19. XENETIX [Concomitant]
     Active Substance: IOBITRIDOL
  20. ARAVA [Suspect]
     Active Substance: LEFLUNOMIDE
     Indication: RHEUMATOID ARTHRITIS
     Route: 048
     Dates: start: 201310, end: 201501
  21. CIMZIA [Suspect]
     Active Substance: CERTOLIZUMAB PEGOL
     Indication: RHEUMATOID ARTHRITIS
     Route: 042
     Dates: start: 201207, end: 20130723
  22. BRICANYL [Concomitant]
     Active Substance: TERBUTALINE SULFATE
     Dates: start: 201203, end: 20120328
  23. EUPANTOL [Suspect]
     Active Substance: PANTOPRAZOLE SODIUM
     Route: 048
     Dates: start: 201308, end: 201501
  24. SERETIDE [Suspect]
     Active Substance: FLUTICASONE FUROATE\SALMETEROL XINAFOATE
     Indication: RHEUMATOID ARTHRITIS
     Route: 055
     Dates: start: 201307, end: 201501
  25. SOLUPRED [Concomitant]
     Active Substance: PREDNISOLONE
     Indication: DYSPNOEA
  26. BRICANYL [Concomitant]
     Active Substance: TERBUTALINE SULFATE
  27. TARDYFERON [Concomitant]
     Active Substance: FERROUS SULFATE\FOLIC ACID
     Dates: start: 201412
  28. ZOLPIDEM [Suspect]
     Active Substance: ZOLPIDEM\ZOLPIDEM TARTRATE
     Route: 048
     Dates: start: 201310, end: 201501
  29. CETIRIZINE [Suspect]
     Active Substance: CETIRIZINE HYDROCHLORIDE
     Route: 048
     Dates: start: 201310, end: 201501

REACTIONS (3)
  - Cardiomegaly [Not Recovered/Not Resolved]
  - Ventricular hypokinesia [Not Recovered/Not Resolved]
  - Cardiac failure [Not Recovered/Not Resolved]

NARRATIVE: CASE EVENT DATE: 20150219
